FAERS Safety Report 19810628 (Version 2)
Quarter: 2021Q3

REPORT INFORMATION
  Report Type: Spontaneous
  Country: US (occurrence: US)
  Receive Date: 20210909
  Receipt Date: 20210927
  Transmission Date: 20211014
  Serious: Yes (Hospitalization, Other)
  Sender: FDA-Public Use
  Company Number: US-PFIZER INC-202101139125

PATIENT
  Age: 62 Year
  Sex: Male

DRUGS (1)
  1. IBRANCE [Suspect]
     Active Substance: PALBOCICLIB
     Indication: BREAST CANCER FEMALE
     Dosage: 125 MG, CYCLIC (DAILY FOR 21 DAYS)
     Route: 048
     Dates: start: 20210712

REACTIONS (7)
  - Pulmonary oedema [Unknown]
  - Headache [Unknown]
  - Fatigue [Unknown]
  - Diplopia [Unknown]
  - Flatulence [Unknown]
  - Peripheral swelling [Unknown]
  - Dyspnoea [Unknown]
